FAERS Safety Report 7647671-4 (Version None)
Quarter: 2011Q3

REPORT INFORMATION
  Report Type: 
  Country: None (occurrence: None)
  Receive Date: 20110801
  Receipt Date: 20110801
  Transmission Date: 20111222
  Serious: No
  Sender: FDA-Public Use
  Company Number: None

PATIENT
  Age: 52 Year
  Sex: Female
  Weight: 60.327 kg

DRUGS (1)
  1. SIMVASTATIN [Suspect]
     Indication: BLOOD CHOLESTEROL INCREASED
     Dosage: 1
     Dates: start: 20110121, end: 20110721

REACTIONS (9)
  - ARTHRALGIA [None]
  - COUGH [None]
  - MUSCLE SPASMS [None]
  - HEADACHE [None]
  - CHILLS [None]
  - SPINAL OSTEOARTHRITIS [None]
  - PAIN [None]
  - PAIN IN EXTREMITY [None]
  - INSOMNIA [None]
